FAERS Safety Report 16449022 (Version 1)
Quarter: 2019Q2

REPORT INFORMATION
  Report Type: Spontaneous
  Country: FR (occurrence: FR)
  Receive Date: 20190619
  Receipt Date: 20190619
  Transmission Date: 20190711
  Serious: Yes (Other)
  Sender: FDA-Public Use
  Company Number: FR-TEVA-2019-FR-1064533

PATIENT
  Age: 40 Year
  Sex: Male
  Weight: 96 kg

DRUGS (4)
  1. DIAZEPAM. [Suspect]
     Active Substance: DIAZEPAM
     Route: 048
  2. VALPROATE DE SODIUM [Suspect]
     Active Substance: VALPROATE SODIUM
     Route: 048
     Dates: start: 20190430
  3. HALOPERIDOL. [Suspect]
     Active Substance: HALOPERIDOL
     Route: 048
  4. CHLORPROMAZINE. [Suspect]
     Active Substance: CHLORPROMAZINE
     Route: 048
     Dates: end: 20190506

REACTIONS (2)
  - Blood creatine phosphokinase increased [Not Recovered/Not Resolved]
  - Neutropenia [Not Recovered/Not Resolved]

NARRATIVE: CASE EVENT DATE: 20190429
